FAERS Safety Report 16764416 (Version 4)
Quarter: 2019Q4

REPORT INFORMATION
  Report Type: Report from Study
  Country: GB (occurrence: GB)
  Receive Date: 20190902
  Receipt Date: 20191119
  Transmission Date: 20200122
  Serious: Yes (Life-Threatening, Hospitalization, Other)
  Sender: FDA-Public Use
  Company Number: GB-BRISTOL-MYERS SQUIBB COMPANY-BMS-2019-082420

PATIENT
  Age: 59 Year
  Sex: Male
  Weight: 76.4 kg

DRUGS (6)
  1. TEMOZOLOMIDE. [Suspect]
     Active Substance: TEMOZOLOMIDE
     Indication: PRODUCT USED FOR UNKNOWN INDICATION
     Dosage: 100 MILLIGRAM/SQ. METER
     Route: 048
     Dates: start: 20191021
  2. LEVETIRACETAM. [Concomitant]
     Active Substance: LEVETIRACETAM
     Indication: PRODUCT USED FOR UNKNOWN INDICATION
     Dosage: 500 MILLIGRAM, BID
     Route: 048
     Dates: start: 20190603
  3. METOCLOPRAMIDE. [Concomitant]
     Active Substance: METOCLOPRAMIDE
     Indication: PRODUCT USED FOR UNKNOWN INDICATION
     Dosage: 10 MILLIGRAM, TID
     Route: 048
     Dates: start: 20190603
  4. OMERAZOLE [Concomitant]
     Active Substance: OMEPRAZOLE
     Indication: PRODUCT USED FOR UNKNOWN INDICATION
     Dosage: 20 MILLIGRAM, QD
     Route: 048
     Dates: start: 20190603, end: 20190819
  5. TEMOZOLOMIDE. [Suspect]
     Active Substance: TEMOZOLOMIDE
     Indication: GLIOBLASTOMA
     Dosage: 200 MILLIGRAM
     Route: 048
     Dates: start: 20190618, end: 20190723
  6. IPILIMUMAB [Suspect]
     Active Substance: IPILIMUMAB
     Indication: GLIOBLASTOMA
     Dosage: 300 MILLIGRAM, Q3WK FOR 4 DOSES
     Route: 042
     Dates: start: 20190524

REACTIONS (3)
  - Thrombocytopenia [Recovered/Resolved]
  - Neutropenia [Unknown]
  - Lymphatic disorder [Not Recovered/Not Resolved]

NARRATIVE: CASE EVENT DATE: 20190812
